FAERS Safety Report 12570854 (Version 1)
Quarter: 2016Q3

REPORT INFORMATION
  Report Type: Spontaneous
  Country: US (occurrence: US)
  Receive Date: 20160719
  Receipt Date: 20160719
  Transmission Date: 20161109
  Serious: No
  Sender: FDA-Public Use
  Company Number: US-AMGEN-USASP2016074583

PATIENT
  Age: 46 Year
  Sex: Female

DRUGS (1)
  1. CORLANOR [Suspect]
     Active Substance: IVABRADINE HYDROCHLORIDE
     Indication: TACHYCARDIA
     Dosage: 5 MG, A DAY IN MORNING.
     Route: 065

REACTIONS (3)
  - Nausea [Unknown]
  - Iron deficiency anaemia [Unknown]
  - Hypertension [Unknown]
